FAERS Safety Report 8559535-2 (Version None)
Quarter: 2012Q3

REPORT INFORMATION
  Report Type: 
  Country: None (occurrence: None)
  Receive Date: 20120802
  Receipt Date: 20120724
  Transmission Date: 20120928
  Serious: Yes (Hospitalization)
  Sender: FDA-Public Use
  Company Number: US-BAYER-2012-015112

PATIENT
  Age: 44 Year
  Sex: Female
  Weight: 92.517 kg

DRUGS (11)
  1. VITAMIN TAB [Concomitant]
     Dosage: UNK
     Dates: start: 20060918
  2. IRON [Concomitant]
     Dosage: UNK
     Dates: start: 20081212
  3. YAZ [Suspect]
     Indication: MENSTRUAL CYCLE MANAGEMENT
  4. ROXICET [Concomitant]
     Dosage: 5/325, 1 TO 2 TABLETS Q4 PRN
  5. FAMOTIDINE [Concomitant]
     Dosage: 20 MG, UNK
  6. VITAMIN B-12 [Concomitant]
     Dosage: UNK
     Dates: start: 20080918
  7. YAZ [Suspect]
     Indication: ACNE
     Dosage: UNK
     Dates: start: 20070801, end: 20080101
  8. YAZ [Suspect]
     Indication: MENSTRUATION IRREGULAR
  9. MOTRIN [Concomitant]
     Dosage: UNK
     Dates: start: 20080101, end: 20100101
  10. PERCOCET [Concomitant]
     Indication: PAIN
     Dosage: 325/5, 1 TO 2 EVERY 4 HOURS PRN
  11. AMBIEN [Concomitant]
     Dosage: 5 MG, 1 EVERY HOUR OF SLEEP
     Route: 048
     Dates: start: 20080107

REACTIONS (5)
  - PULMONARY EMBOLISM [None]
  - PAIN IN EXTREMITY [None]
  - DEPRESSION [None]
  - PAIN [None]
  - INJURY [None]
